FAERS Safety Report 10661522 (Version 2)
Quarter: 2015Q1

REPORT INFORMATION
  Report Type: Spontaneous
  Country: US (occurrence: None)
  Receive Date: 20141216
  Receipt Date: 20150113
  Transmission Date: 20150720
  Serious: Yes (Other)
  Sender: FDA-Public Use
  Company Number: US-20140028

PATIENT
  Age: 46 Year
  Sex: Female

DRUGS (2)
  1. ADRIAMYCIN [Suspect]
     Active Substance: DOXORUBICIN HYDROCHLORIDE
     Indication: THERAPEUTIC EMBOLISATION
     Route: 013
     Dates: start: 20141009, end: 20141009
  2. LIPIODOL [Suspect]
     Active Substance: ETHIODIZED OIL
     Indication: THERAPEUTIC EMBOLISATION
     Route: 013
     Dates: start: 20121009, end: 20121009

REACTIONS (1)
  - Cholecystitis [None]

NARRATIVE: CASE EVENT DATE: 20121010
